FAERS Safety Report 8361062-2 (Version None)
Quarter: 2012Q2

REPORT INFORMATION
  Report Type: 
  Country: None (occurrence: None)
  Receive Date: 20120514
  Receipt Date: 20120427
  Transmission Date: 20120825
  Serious: Yes (Life-Threatening, Hospitalization)
  Sender: FDA-Public Use
  Company Number: 2012MA005572

PATIENT
  Age: 42 Year
  Sex: Female

DRUGS (12)
  1. VENLAFAXINE HYDROCHLORIDE [Suspect]
     Dosage: 75 MG;BID;PO
     Route: 048
  2. OMEPRAZOLE [Suspect]
     Dosage: 20 MG;BID;PO
     Route: 048
  3. MICONAZOLE [Concomitant]
  4. SCHERIPROCT [Concomitant]
  5. BENZYDAMINE [Concomitant]
  6. METRONIDAZOLE [Concomitant]
  7. GABAPENTIN [Suspect]
     Dosage: 600 MG;QID;PO
     Route: 048
  8. METHOTREXATE [Suspect]
     Dosage: 25 MG;QW;PO
     Route: 048
  9. FLUCLOXACILLIN [Concomitant]
  10. NYSTATIN [Concomitant]
  11. HYDROXYCHLOROQUINE SULFATE [Suspect]
     Indication: RHEUMATOID ARTHRITIS
     Dosage: 400 MG;QD;PO
     Route: 048
  12. SULFASALAZINE [Suspect]
     Dosage: 500 MG;PO
     Route: 048

REACTIONS (7)
  - ABDOMINAL PAIN [None]
  - INCREASED TENDENCY TO BRUISE [None]
  - HAEMATEMESIS [None]
  - DIARRHOEA [None]
  - PLATELET COUNT DECREASED [None]
  - FULL BLOOD COUNT DECREASED [None]
  - ACUTE MYELOID LEUKAEMIA [None]
